FAERS Safety Report 8599159-4 (Version None)
Quarter: 2012Q3

REPORT INFORMATION
  Report Type: 
  Country: None (occurrence: None)
  Receive Date: 20120816
  Receipt Date: 20120806
  Transmission Date: 20120928
  Serious: Yes (Hospitalization)
  Sender: FDA-Public Use
  Company Number: DE-PFIZER INC-2012191461

PATIENT
  Age: 70 Year
  Sex: Male
  Weight: 68.7 kg

DRUGS (8)
  1. LEUCOVORIN CALCIUM [Suspect]
     Indication: COLORECTAL CANCER METASTATIC
     Dosage: 756 MG, EVERY 2 WEEKS
     Route: 042
     Dates: start: 20120723
  2. BEVACIZUMAB [Suspect]
     Indication: COLORECTAL CANCER METASTATIC
     Dosage: 362 MG, EVERY 2 WEEKS
     Route: 042
     Dates: start: 20120723
  3. NOVALGIN [Concomitant]
     Dosage: 500 MG, AS NEEDED
     Route: 048
  4. IRINOTECAN HCL [Suspect]
     Indication: COLORECTAL CANCER METASTATIC
     Dosage: 370 MG, EVERY 2 WEEKS
     Route: 042
     Dates: start: 20120723
  5. FLUOROURACIL [Suspect]
     Dosage: 4536 MG, EVERY 2 WEEKS
     Route: 041
     Dates: start: 20120723
  6. LACTULOSE [Concomitant]
     Dosage: 20 ML, AS NEEDED
     Route: 048
  7. FLUOROURACIL [Suspect]
     Indication: COLORECTAL CANCER METASTATIC
     Dosage: 756 MG, ONE DOSE EVERY 2 WEEKS
     Route: 040
     Dates: start: 20120723
  8. AMLODIPINE [Concomitant]
     Dosage: 5 MG, 1X/DAY
     Route: 048

REACTIONS (1)
  - GENERAL PHYSICAL CONDITION ABNORMAL [None]
